FAERS Safety Report 5337035-0 (Version None)
Quarter: 2007Q2

REPORT INFORMATION
  Report Type: 
  Country: None (occurrence: None)
  Receive Date: 20070529
  Receipt Date: 20070517
  Transmission Date: 20071010
  Serious: Yes (Death, Hospitalization)
  Sender: FDA-Public Use
  Company Number: US-ROCHE-415887

PATIENT
  Age: 54 Year
  Sex: Male
  Weight: 127.9 kg

DRUGS (3)
  1. CAPECITABINE [Suspect]
     Dosage: THERAPY GIVEN ON DAYS 1-14 FOLLOWED BY A 7 DAY REST.
     Route: 048
     Dates: start: 20050315
  2. CAPECITABINE [Suspect]
     Route: 048
     Dates: end: 20050823
  3. DOCETAXEL [Suspect]
     Route: 042
     Dates: start: 20050315, end: 20050817

REACTIONS (4)
  - ARRHYTHMIA SUPRAVENTRICULAR [None]
  - HYPERTENSION [None]
  - MYOCARDIAL INFARCTION [None]
  - VENTRICULAR ARRHYTHMIA [None]
